FAERS Safety Report 14149552 (Version 1)
Quarter: 2017Q4

REPORT INFORMATION
  Report Type: Spontaneous
  Country: BR (occurrence: BR)
  Receive Date: 20171101
  Receipt Date: 20171101
  Transmission Date: 20180321
  Serious: Yes (Other)
  Sender: FDA-Public Use
  Company Number: BR-SA-2017SA163801

PATIENT
  Age: 64 Year
  Sex: Male
  Weight: 80 kg

DRUGS (12)
  1. THYMOGLOBULINE [Suspect]
     Active Substance: LAPINE T-LYMPHOCYTE IMMUNE GLOBULIN
     Indication: IMMUNOSUPPRESSION
     Route: 042
     Dates: start: 20170827, end: 20170827
  2. METAMIZOLE SODIUM [Concomitant]
     Active Substance: METAMIZOLE SODIUM
     Dosage: 500MG/ML
     Route: 042
     Dates: start: 20170831
  3. PREDNISONE. [Concomitant]
     Active Substance: PREDNISONE
     Dosage: 20MG
     Route: 065
     Dates: start: 20170827
  4. RANITIDINE. [Concomitant]
     Active Substance: RANITIDINE
     Dosage: 150MG
     Route: 065
     Dates: start: 20170827
  5. ALBENDAZOLE [Concomitant]
     Active Substance: ALBENDAZOLE
     Dosage: 400MG
     Route: 065
     Dates: start: 20170827, end: 20170831
  6. CEFAZOLIN [Concomitant]
     Active Substance: CEFAZOLIN
     Dosage: 1G
     Route: 065
     Dates: start: 20170826, end: 20170827
  7. BACTRIM [Concomitant]
     Active Substance: SULFAMETHOXAZOLE\TRIMETHOPRIM
     Dosage: 400MG/80MG
     Route: 065
     Dates: start: 20170827
  8. METAMIZOLE SODIUM [Concomitant]
     Active Substance: METAMIZOLE SODIUM
     Dosage: 500MG/ML
     Route: 065
     Dates: start: 20170826, end: 20170828
  9. ZOFRAN [Concomitant]
     Active Substance: ONDANSETRON HYDROCHLORIDE
     Dosage: 2MG/ML
     Route: 065
     Dates: start: 20170827, end: 20170827
  10. PREDNISONE. [Concomitant]
     Active Substance: PREDNISONE
     Dosage: 5MG
     Route: 065
     Dates: start: 20170827
  11. HYDROCORTISONE. [Concomitant]
     Active Substance: HYDROCORTISONE
     Dosage: 100MG
     Route: 042
     Dates: start: 20170831
  12. HYDROCORTISONE. [Concomitant]
     Active Substance: HYDROCORTISONE
     Dosage: 100MG
     Route: 065
     Dates: start: 20170827, end: 20170827

REACTIONS (3)
  - Scar [Unknown]
  - Pruritus [Recovered/Resolved]
  - Hyperaemia [Unknown]

NARRATIVE: CASE EVENT DATE: 20170828
